FAERS Safety Report 23378040 (Version 1)
Quarter: 2024Q1

REPORT INFORMATION
  Report Type: Spontaneous
  Country: US (occurrence: US)
  Receive Date: 20240108
  Receipt Date: 20240108
  Transmission Date: 20240409
  Serious: Yes (Other)
  Sender: FDA-Public Use
  Company Number: US-AMGEN-USASP2023232985

PATIENT
  Age: 56 Year
  Sex: Male

DRUGS (1)
  1. BEVACIZUMAB [Suspect]
     Active Substance: BEVACIZUMAB
     Indication: Ocular sarcoidosis
     Dosage: 1.25 MILLIGRAM, QMO/0.05 ML

REACTIONS (5)
  - Atrioventricular block complete [Unknown]
  - Ocular sarcoidosis [Unknown]
  - Off label use [Unknown]
  - Drug ineffective for unapproved indication [Unknown]
  - Fatigue [Unknown]
